FAERS Safety Report 24710089 (Version 1)
Quarter: 2024Q4

REPORT INFORMATION
  Report Type: Spontaneous
  Country: US (occurrence: US)
  Receive Date: 20241209
  Receipt Date: 20241209
  Transmission Date: 20250115
  Serious: No
  Sender: APOTEX
  Company Number: US-APOTEX-2023AP016726

PATIENT
  Sex: Male

DRUGS (3)
  1. OLANZAPINE [Suspect]
     Active Substance: OLANZAPINE
     Indication: Product used for unknown indication
     Dosage: UNK
     Route: 065
  2. CERITINIB [Suspect]
     Active Substance: CERITINIB
     Indication: Non-small cell lung cancer
     Dosage: UNK
     Route: 065
  3. CERITINIB [Suspect]
     Active Substance: CERITINIB
     Dosage: UNK, RESUMED AT REDUCED DOSE
     Route: 065

REACTIONS (2)
  - Solar dermatitis [Recovering/Resolving]
  - Photosensitivity reaction [Recovering/Resolving]
